FAERS Safety Report 26114327 (Version 1)
Quarter: 2025Q4

REPORT INFORMATION
  Report Type: Spontaneous
  Country: US (occurrence: US)
  Receive Date: 20251202
  Receipt Date: 20251202
  Transmission Date: 20260117
  Serious: No
  Sender: CARDINAL HEALTH
  Company Number: US-Cardinal Health 414-NPHS-AE-25-2

PATIENT
  Age: 60 Year
  Sex: Male

DRUGS (1)
  1. FLUDEOXYGLUCOSE F-18 [Suspect]
     Active Substance: FLUDEOXYGLUCOSE F-18
     Indication: Positron emission tomogram
     Dosage: EXP. 2/20/2025 AT 5:48 PM
     Route: 042
     Dates: start: 20250220, end: 20250220

REACTIONS (7)
  - Dyspnoea [Unknown]
  - Loss of consciousness [Recovered/Resolved]
  - Presyncope [Recovered/Resolved]
  - Panic attack [Unknown]
  - Hyperhidrosis [Unknown]
  - Pallor [Unknown]
  - Hypotension [Unknown]

NARRATIVE: CASE EVENT DATE: 20250220
